FAERS Safety Report 22627725 (Version 5)
Quarter: 2024Q3

REPORT INFORMATION
  Report Type: Spontaneous
  Country: IT (occurrence: IT)
  Receive Date: 20230622
  Receipt Date: 20240709
  Transmission Date: 20241017
  Serious: Yes (Hospitalization)
  Sender: ROCHE
  Company Number: None

PATIENT
  Age: 27 Year
  Sex: Female
  Weight: 144.0 kg

DRUGS (14)
  1. NUTROPIN [Suspect]
     Active Substance: SOMATROPIN
     Indication: Hypopituitarism
     Dosage: 0.4 MG/DAY 5 DAYS PER WEEK
     Route: 065
  2. CLONAZEPAM [Suspect]
     Active Substance: CLONAZEPAM
     Indication: Epilepsy
     Route: 065
  3. CORTISONE ACETATE [Suspect]
     Active Substance: CORTISONE ACETATE
     Indication: Hypopituitarism
     Dosage: 50 MG/DAY
     Route: 065
     Dates: start: 2022
  4. CORTISONE ACETATE [Suspect]
     Active Substance: CORTISONE ACETATE
     Dosage: 31.25 MILLIGRAM/ DAY
     Route: 065
  5. DESMOPRESSIN [Suspect]
     Active Substance: DESMOPRESSIN
     Indication: Diabetes insipidus
     Dosage: 180 MCG/DAY
     Route: 065
  6. PERAMPANEL [Suspect]
     Active Substance: PERAMPANEL
     Indication: Epilepsy
     Dosage: 8 MG/ DAY
     Route: 065
  7. PERAMPANEL [Suspect]
     Active Substance: PERAMPANEL
     Dosage: 16 MG/DAY
     Route: 065
     Dates: start: 2022
  8. LACOSAMIDE [Suspect]
     Active Substance: LACOSAMIDE
     Indication: Epilepsy
     Dosage: 200 MG/ DAY
     Route: 065
  9. VALPROATE SODIUM [Suspect]
     Active Substance: VALPROATE SODIUM
     Indication: Epilepsy
     Dosage: 750 MG/DAY
     Route: 065
  10. LORAZEPAM [Suspect]
     Active Substance: LORAZEPAM
     Indication: Epilepsy
     Dosage: 4 MILLIGRAM
     Route: 065
     Dates: start: 2022
  11. LAMOTRIGINE [Suspect]
     Active Substance: LAMOTRIGINE
     Indication: Epilepsy
     Dosage: UNK
     Route: 065
     Dates: start: 2022
  12. LEVOTHYROXINE SODIUM [Suspect]
     Active Substance: LEVOTHYROXINE SODIUM
     Indication: Product used for unknown indication
     Dosage: 200 MCG/DAY
     Route: 065
  13. LEVETIRACETAM [Suspect]
     Active Substance: LEVETIRACETAM
     Indication: Epilepsy
     Dosage: 3500 MG/DAY
     Route: 065
  14. LEVETIRACETAM [Suspect]
     Active Substance: LEVETIRACETAM
     Dosage: 2500 MG/DAY
     Route: 065

REACTIONS (7)
  - Cerebral salt-wasting syndrome [Recovered/Resolved]
  - Somnolence [Recovered/Resolved]
  - Seizure [Unknown]
  - Multiple-drug resistance [Unknown]
  - Off label use [Unknown]
  - Hypernatraemia [Recovered/Resolved]
  - Urine output increased [Recovered/Resolved]

NARRATIVE: CASE EVENT DATE: 20220101
